FAERS Safety Report 7768389-3 (Version None)
Quarter: 2011Q3

REPORT INFORMATION
  Report Type: 
  Country: None (occurrence: None)
  Receive Date: 20110922
  Receipt Date: 20101108
  Transmission Date: 20111222
  Serious: Yes (Other)
  Sender: FDA-Public Use
  Company Number: US-ASTRAZENECA-2010SE53053

PATIENT
  Sex: Female

DRUGS (2)
  1. GEODON [Suspect]
  2. SEROQUEL [Suspect]
     Route: 048

REACTIONS (8)
  - HEAD INJURY [None]
  - MUSCLE RIGIDITY [None]
  - FALL [None]
  - HYPOKINESIA [None]
  - TARDIVE DYSKINESIA [None]
  - SYNCOPE [None]
  - WRONG TECHNIQUE IN DRUG USAGE PROCESS [None]
  - FEELING ABNORMAL [None]
